FAERS Safety Report 8391187-7 (Version None)
Quarter: 2012Q2

REPORT INFORMATION
  Report Type: 
  Country: None (occurrence: None)
  Receive Date: 20120529
  Receipt Date: 20120515
  Transmission Date: 20120825
  Serious: Yes (Other)
  Sender: FDA-Public Use
  Company Number: CA-ELI_LILLY_AND_COMPANY-CA201205006387

PATIENT
  Age: 15 Year
  Sex: Female
  Weight: 80 kg

DRUGS (5)
  1. STRATTERA [Suspect]
     Dosage: 60 MG, UNK
  2. ESCITALOPRAM [Concomitant]
     Indication: DEPRESSION
  3. STRATTERA [Suspect]
     Dosage: 40 MG, UNK
  4. STRATTERA [Suspect]
     Dosage: 18 MG, UNK
  5. STRATTERA [Suspect]
     Dosage: 25 MG, UNK

REACTIONS (10)
  - HOMICIDAL IDEATION [None]
  - HYPERSOMNIA [None]
  - FRUSTRATION [None]
  - DRUG INEFFECTIVE [None]
  - SUICIDAL IDEATION [None]
  - VOMITING [None]
  - AGGRESSION [None]
  - APATHY [None]
  - RESTLESSNESS [None]
  - MOOD ALTERED [None]
